FAERS Safety Report 4902623-X (Version None)
Quarter: 2006Q1

REPORT INFORMATION
  Report Type: 
  Country: None (occurrence: None)
  Receive Date: 20060207
  Receipt Date: 20060109
  Transmission Date: 20060701
  Serious: Yes (Other)
  Sender: FDA-Public Use
  Company Number: DE-BRISTOL-MYERS SQUIBB COMPANY-13241856

PATIENT
  Age: 69 Year
  Sex: Female
  Weight: 60 kg

DRUGS (5)
  1. TAXOL [Suspect]
     Indication: BREAST CANCER
     Route: 042
  2. RADIATION THERAPY [Suspect]
     Indication: BREAST CANCER
  3. HERCEPTIN [Concomitant]
     Indication: BREAST CANCER
  4. DEXAMETHASONE [Concomitant]
  5. ZOMETA [Concomitant]

REACTIONS (2)
  - OPEN WOUND [None]
  - RADIATION SKIN INJURY [None]
